FAERS Safety Report 5311825-2 (Version None)
Quarter: 2007Q2

REPORT INFORMATION
  Report Type: 
  Country: None (occurrence: None)
  Receive Date: 20070427
  Receipt Date: 20070427
  Transmission Date: 20071010
  Serious: Yes (Hospitalization, Other)
  Sender: FDA-Public Use
  Company Number: None

PATIENT
  Age: 18 Year
  Sex: Female
  Weight: 56.246 kg

DRUGS (2)
  1. ZELNORM [Suspect]
     Indication: CONSTIPATION
     Dosage: 6MCG  BID   PO
     Route: 048
     Dates: start: 20030303, end: 20070416
  2. ZELNORM [Suspect]
     Indication: IRRITABLE BOWEL SYNDROME
     Dosage: 6MCG  BID   PO
     Route: 048
     Dates: start: 20030303, end: 20070416

REACTIONS (4)
  - ABDOMINAL PAIN [None]
  - MALAISE [None]
  - PYREXIA [None]
  - VOMITING [None]
